FAERS Safety Report 14764493 (Version 1)
Quarter: 2018Q2

REPORT INFORMATION
  Report Type: Spontaneous
  Country: JP (occurrence: JP)
  Receive Date: 20180416
  Receipt Date: 20180416
  Transmission Date: 20180711
  Serious: Yes (Other)
  Sender: FDA-Public Use
  Company Number: JP-PFIZER INC-2018151442

PATIENT

DRUGS (2)
  1. METHOTREXATE. [Suspect]
     Active Substance: METHOTREXATE
     Indication: BREAST CANCER
  2. METHOTREXATE. [Suspect]
     Active Substance: METHOTREXATE
     Indication: MENINGIOMA
     Dosage: 10 MG, UNK
     Route: 037

REACTIONS (1)
  - Leukoencephalopathy [Unknown]
